FAERS Safety Report 12767198 (Version 1)
Quarter: 2016Q3

REPORT INFORMATION
  Report Type: Spontaneous
  Country: US (occurrence: US)
  Receive Date: 20160917
  Receipt Date: 20160917
  Transmission Date: 20161109
  Serious: No
  Sender: FDA-Public Use
  Company Number: None

PATIENT
  Sex: Male

DRUGS (1)
  1. NEUPOGEN [Suspect]
     Active Substance: FILGRASTIM
     Indication: PLASMA CELL MYELOMA
     Dosage: 480MCG 6 DAYS PER WEEK AS SUBCUTANEOUSLY
     Route: 058
     Dates: start: 20160426

REACTIONS (3)
  - Malaise [None]
  - Therapy cessation [None]
  - Rash [None]
